FAERS Safety Report 7659337-5 (Version None)
Quarter: 2011Q3

REPORT INFORMATION
  Report Type: 
  Country: None (occurrence: None)
  Receive Date: 20110805
  Receipt Date: 20110728
  Transmission Date: 20111222
  Serious: Yes (Other)
  Sender: FDA-Public Use
  Company Number: US-ROCHE-790620

PATIENT
  Sex: Male

DRUGS (1)
  1. AVASTIN [Suspect]
     Route: 047
     Dates: start: 20110708

REACTIONS (2)
  - ENDOPHTHALMITIS [None]
  - PRODUCT QUALITY ISSUE [None]
